FAERS Safety Report 16572173 (Version 1)
Quarter: 2019Q3

REPORT INFORMATION
  Report Type: Spontaneous
  Country: US (occurrence: US)
  Receive Date: 20190715
  Receipt Date: 20190715
  Transmission Date: 20191004
  Serious: No
  Sender: FDA-Public Use
  Company Number: US-GALDERMA-US19028498

PATIENT
  Sex: Female

DRUGS (2)
  1. PROACTIV MD ADAPALENE ACNE TREATMENT [Suspect]
     Active Substance: ADAPALENE
     Indication: ROSACEA
     Dosage: 0.1%
     Route: 061
     Dates: start: 20190420, end: 20190427
  2. PROACTIV GREEN TEA MOISTURIZER [Concomitant]
     Active Substance: COSMETICS
     Indication: ROSACEA
     Route: 061
     Dates: start: 20190420, end: 20190427

REACTIONS (4)
  - Rosacea [Recovering/Resolving]
  - Dry skin [Recovering/Resolving]
  - Skin irritation [Recovering/Resolving]
  - Product use in unapproved indication [Recovered/Resolved]

NARRATIVE: CASE EVENT DATE: 20190420
